FAERS Safety Report 5314603-3 (Version None)
Quarter: 2007Q2

REPORT INFORMATION
  Report Type: 
  Country: None (occurrence: None)
  Receive Date: 20070427
  Receipt Date: 20070418
  Transmission Date: 20071010
  Serious: Yes (Hospitalization)
  Sender: FDA-Public Use
  Company Number: 2007RL000169

PATIENT
  Age: 87 Year
  Sex: Female
  Weight: 50 kg

DRUGS (5)
  1. PROPAFENONE HCL [Suspect]
     Dosage: 300 MG, BID; PO, 300 MG, BID; PO
     Route: 048
     Dates: start: 20070321, end: 20070401
  2. PROPAFENONE HCL [Suspect]
     Dosage: 300 MG, BID; PO, 300 MG, BID; PO
     Route: 048
     Dates: start: 20070401
  3. FUROSEMIDE [Concomitant]
  4. PRESOLINA [Concomitant]
  5. MADOPAR [Concomitant]

REACTIONS (9)
  - AMNESIA [None]
  - ANOREXIA [None]
  - BLOOD POTASSIUM INCREASED [None]
  - CONFUSIONAL STATE [None]
  - DYSSTASIA [None]
  - FATIGUE [None]
  - RENAL DISORDER [None]
  - SPEECH DISORDER [None]
  - URINARY TRACT INFECTION [None]
